FAERS Safety Report 9836283 (Version 3)
Quarter: 2014Q2

REPORT INFORMATION
  Report Type: Report from Study
  Country: JP (occurrence: JP)
  Receive Date: 20140123
  Receipt Date: 20140618
  Transmission Date: 20141212
  Serious: Yes (Other)
  Sender: FDA-Public Use
  Company Number: JP-AMGEN-JPNCT2014004465

PATIENT
  Age: 86 Year
  Sex: Male

DRUGS (7)
  1. DENOSUMAB [Suspect]
     Indication: METASTASES TO BONE
     Dosage: 120 MG/5/21/2012, 6/18, 7/13, 8/10, 9/7, 10/5, 11/2, 11/30, 12/27, 1/24/2013, 2/21, 3/21, 4/18, 5/30
     Route: 058
     Dates: start: 20120521
  2. ZOMETA [Concomitant]
     Indication: PRODUCT USED FOR UNKNOWN INDICATION
     Dosage: 4 MG, QD
     Route: 042
     Dates: start: 20100628, end: 20120423
  3. CALFINA [Concomitant]
     Dosage: UNK
     Route: 048
     Dates: start: 20100325, end: 20121226
  4. CALCICHEW [Concomitant]
     Dosage: UNK
     Route: 048
     Dates: start: 20121227
  5. ZOLADEX                            /00732101/ [Concomitant]
     Dosage: UNKNOWN
     Route: 065
     Dates: start: 20100128
  6. ODYNE [Concomitant]
     Dosage: UNKNOWN
     Route: 065
     Dates: start: 20101030
  7. UFT [Concomitant]
     Dosage: UNKNOWN
     Route: 065
     Dates: start: 20110814

REACTIONS (1)
  - Osteonecrosis of jaw [Recovering/Resolving]
